FAERS Safety Report 6148400-6 (Version None)
Quarter: 2009Q2

REPORT INFORMATION
  Report Type: 
  Country: None (occurrence: None)
  Receive Date: 20090408
  Receipt Date: 20090331
  Transmission Date: 20091009
  Serious: Yes (Other)
  Sender: FDA-Public Use
  Company Number: US-B.I. PHARMACEUTICALS,INC./RIDGEFIELD-2009-BP-03954BP

PATIENT
  Sex: Female

DRUGS (8)
  1. MIRAPEX [Suspect]
  2. LYRICA [Suspect]
     Indication: DIABETIC NEUROPATHY
     Dosage: 300MG
     Route: 048
     Dates: start: 20080101, end: 20080101
  3. NEURONTIN [Suspect]
     Indication: DIABETIC NEUROPATHY
  4. METFORMIN HCL [Suspect]
  5. EFFEXOR [Concomitant]
  6. CYMBALTA [Concomitant]
  7. LASIX [Concomitant]
  8. GLIBENCLAMIDE/METFORMIN (CLIBENCLAMIDE, METFORMIN) [Concomitant]

REACTIONS (7)
  - ABDOMINAL DISCOMFORT [None]
  - FATIGUE [None]
  - HYPERSOMNIA [None]
  - LOSS OF CONSCIOUSNESS [None]
  - OEDEMA PERIPHERAL [None]
  - SKIN DISCOLOURATION [None]
  - YAWNING [None]
